FAERS Safety Report 5474533-3 (Version None)
Quarter: 2007Q4

REPORT INFORMATION
  Report Type: 
  Country: None (occurrence: None)
  Receive Date: 20071002
  Receipt Date: 20070926
  Transmission Date: 20080405
  Serious: Yes (Hospitalization, Other)
  Sender: FDA-Public Use
  Company Number: US-ELI_LILLY_AND_COMPANY-US200709006262

PATIENT
  Age: 26 Year
  Sex: Male

DRUGS (3)
  1. ZYPREXA [Suspect]
     Indication: BRAIN DAMAGE
     Dates: start: 20011101, end: 20041001
  2. DEPAKOTE [Concomitant]
  3. ABILIFY [Concomitant]
     Dates: start: 20041001

REACTIONS (8)
  - CONFUSIONAL STATE [None]
  - DIABETES MELLITUS [None]
  - DISORIENTATION [None]
  - FEELING ABNORMAL [None]
  - HOSPITALISATION [None]
  - HYPERGLYCAEMIA [None]
  - SUICIDAL IDEATION [None]
  - SUICIDE ATTEMPT [None]
